FAERS Safety Report 23361524 (Version 1)
Quarter: 2024Q1

REPORT INFORMATION
  Report Type: Spontaneous
  Country: US (occurrence: US)
  Receive Date: 20240103
  Receipt Date: 20240103
  Transmission Date: 20240409
  Serious: No
  Sender: FDA-Public Use
  Company Number: US-BAYER-2024A000003

PATIENT

DRUGS (1)
  1. ALEVE [Suspect]
     Active Substance: NAPROXEN SODIUM
     Indication: Cardiac failure congestive
     Dosage: UNK

REACTIONS (3)
  - Pain in extremity [Unknown]
  - Gait inability [Recovered/Resolved]
  - Cardiac failure congestive [Unknown]
